FAERS Safety Report 9603002 (Version 1)
Quarter: 2013Q4

REPORT INFORMATION
  Report Type: Spontaneous
  Country: US (occurrence: US)
  Receive Date: 20131007
  Receipt Date: 20131007
  Transmission Date: 20140711
  Serious: Yes (Death)
  Sender: FDA-Public Use
  Company Number: US-ACTELION-A-NJ2013-89202

PATIENT
  Age: 65 Year
  Sex: Female

DRUGS (17)
  1. TRACLEER [Suspect]
     Indication: PULMONARY ARTERIAL HYPERTENSION
     Dosage: 62.5 MG, BID
     Route: 048
  2. SILDENAFIL [Concomitant]
     Dosage: 20 MG, TID
  3. PROVENTIL HFA [Concomitant]
     Dosage: 4 TIMES DAILY
  4. ALBUTEROL SULFATE [Concomitant]
     Dosage: UNK, Q4HRS
  5. ATROVENT [Concomitant]
     Dosage: Q4-6HRS, PRN
  6. ALDACTONE [Concomitant]
     Dosage: 25 MG, QD
  7. LANOXIN [Concomitant]
     Dosage: 0.125 MG, QD
  8. PEPCID [Concomitant]
     Dosage: 20 MG, QD
  9. TORSEMIDE [Concomitant]
     Dosage: 50 MG, QD
  10. PROTONIX [Concomitant]
     Dosage: 40 MG, QD
  11. TOPROL [Concomitant]
     Dosage: 25 MG, QD
  12. VITAMIN D [Concomitant]
     Dosage: 400 MG, BID
  13. KLOR-CON [Concomitant]
     Dosage: 20 MEQ, UNK
  14. OXYGEN [Concomitant]
     Dosage: 4 L, PER MIN
  15. ALPRAZOLAM [Concomitant]
     Dosage: 1 MG, QD
  16. ZOLPIDEM [Concomitant]
     Dosage: 10 MG, PRN
  17. EFFEXOR XR [Concomitant]
     Dosage: 75 MG, BID

REACTIONS (2)
  - Death [Fatal]
  - Fluid retention [Recovering/Resolving]
